FAERS Safety Report 7489921-3 (Version None)
Quarter: 2011Q2

REPORT INFORMATION
  Report Type: 
  Country: None (occurrence: None)
  Receive Date: 20110512
  Receipt Date: 20110426
  Transmission Date: 20111010
  Serious: Yes (Other)
  Sender: FDA-Public Use
  Company Number: 026352

PATIENT
  Age: 30 Year
  Sex: Female

DRUGS (1)
  1. CIMZIA [Suspect]
     Indication: PSORIATIC ARTHROPATHY
     Dosage: (SUBCUTANEOUS)
     Route: 058
     Dates: start: 20101006, end: 20110116

REACTIONS (6)
  - OFF LABEL USE [None]
  - BUTTERFLY RASH [None]
  - HEADACHE [None]
  - MALAISE [None]
  - URTICARIA [None]
  - ANTINUCLEAR ANTIBODY POSITIVE [None]
